FAERS Safety Report 6429311-5 (Version None)
Quarter: 2009Q4

REPORT INFORMATION
  Report Type: 
  Country: None (occurrence: None)
  Receive Date: 20091030
  Receipt Date: 20091014
  Transmission Date: 20100525
  Serious: Yes (Hospitalization)
  Sender: FDA-Public Use
  Company Number: IMP_04603_2009

PATIENT
  Sex: Female

DRUGS (7)
  1. OXYCODONE HCL [Suspect]
     Indication: PAIN
     Dosage: TOOK AT LEAST (10) 5MG TABLETS AS NEEDED THROUGHOUT THE DAY)
  2. OXYCONTIN [Suspect]
     Indication: PAIN
     Dosage: TOOK 3-4 (10 MG) TABLETS AS NEEDED THROUGHOUT THE DAY
  3. MEMANTINE HCL [Concomitant]
  4. TRAZODONE HCL [Concomitant]
  5. LORAZEPAM [Concomitant]
  6. ACETAMINOPHEN [Concomitant]
  7. QUETIAPINE [Concomitant]

REACTIONS (7)
  - ABNORMAL BEHAVIOUR [None]
  - AGITATION [None]
  - ANXIETY [None]
  - DRUG INEFFECTIVE [None]
  - FEELING COLD [None]
  - PAIN [None]
  - RESTLESSNESS [None]
